FAERS Safety Report 7280837-4 (Version None)
Quarter: 2011Q1

REPORT INFORMATION
  Report Type: 
  Country: None (occurrence: None)
  Receive Date: 20110208
  Receipt Date: 20110208
  Transmission Date: 20110831
  Serious: No
  Sender: FDA-Public Use
  Company Number: None

PATIENT
  Age: 61 Year
  Sex: Male
  Weight: 122.4712 kg

DRUGS (1)
  1. BOCA STERILE ALCOHOL SWABS [Suspect]
     Dosage: FALL 2010
     Dates: start: 20100101

REACTIONS (7)
  - URTICARIA [None]
  - WEIGHT INCREASED [None]
  - FLUID RETENTION [None]
  - BACILLUS INFECTION [None]
  - ULCER [None]
  - OEDEMA PERIPHERAL [None]
  - SWELLING FACE [None]
